FAERS Safety Report 13493828 (Version 2)
Quarter: 2017Q2

REPORT INFORMATION
  Report Type: Spontaneous
  Country: US (occurrence: US)
  Receive Date: 20170427
  Receipt Date: 20170503
  Transmission Date: 20170830
  Serious: Yes (Life-Threatening, Hospitalization, Disabling)
  Sender: FDA-Public Use
  Company Number: US-009507513-1704USA008699

PATIENT
  Age: 80 Year
  Sex: Female

DRUGS (1)
  1. BRIDION [Suspect]
     Active Substance: SUGAMMADEX
     Indication: SURGERY
     Dosage: UNK
     Route: 042

REACTIONS (2)
  - Hypotension [Recovered/Resolved]
  - Adverse event [Unknown]
